FAERS Safety Report 25300376 (Version 1)
Quarter: 2025Q2

REPORT INFORMATION
  Report Type: Spontaneous
  Country: FR (occurrence: FR)
  Receive Date: 20250512
  Receipt Date: 20250512
  Transmission Date: 20250717
  Serious: Yes (Hospitalization)
  Sender: JOHNSON AND JOHNSON
  Company Number: FR-JNJFOC-20250512246

PATIENT
  Age: 55 Year
  Sex: Male

DRUGS (16)
  1. HALOPERIDOL [Interacting]
     Active Substance: HALOPERIDOL
     Indication: Psychotic disorder
  2. RISPERIDONE [Interacting]
     Active Substance: RISPERIDONE
     Indication: Psychotic disorder
  3. RISPERIDONE [Interacting]
     Active Substance: RISPERIDONE
  4. RISPERIDONE [Interacting]
     Active Substance: RISPERIDONE
  5. RISPERIDONE [Interacting]
     Active Substance: RISPERIDONE
  6. RISPERIDONE [Interacting]
     Active Substance: RISPERIDONE
  7. RISPERIDONE [Interacting]
     Active Substance: RISPERIDONE
  8. DEPAKOTE [Interacting]
     Active Substance: DIVALPROEX SODIUM
     Indication: Psychotic disorder
  9. OLANZAPINE [Interacting]
     Active Substance: OLANZAPINE
     Indication: Psychotic disorder
  10. QUETIAPINE FUMARATE [Interacting]
     Active Substance: QUETIAPINE FUMARATE
     Indication: Psychotic disorder
  11. DIAZEPAM [Interacting]
     Active Substance: DIAZEPAM
     Indication: Psychotic disorder
  12. LOXAPINE [Interacting]
     Active Substance: LOXAPINE
     Indication: Psychotic disorder
  13. HERBALS\SAW PALMETTO [Concomitant]
     Active Substance: HERBALS\SAW PALMETTO
     Indication: Product used for unknown indication
  14. TAMSULOSIN [Concomitant]
     Active Substance: TAMSULOSIN
     Indication: Product used for unknown indication
  15. NICARDIPINE [Concomitant]
     Active Substance: NICARDIPINE
     Indication: Psychotic disorder
  16. TROPATEPINE [Concomitant]
     Active Substance: TROPATEPINE
     Indication: Product used for unknown indication

REACTIONS (3)
  - Somnolence [Not Recovered/Not Resolved]
  - Pneumonia aspiration [Not Recovered/Not Resolved]
  - Drug interaction [Not Recovered/Not Resolved]

NARRATIVE: CASE EVENT DATE: 20250331
